FAERS Safety Report 7579491-3 (Version None)
Quarter: 2011Q2

REPORT INFORMATION
  Report Type: 
  Country: None (occurrence: None)
  Receive Date: 20110629
  Receipt Date: 20090707
  Transmission Date: 20111010
  Serious: Yes (Hospitalization, Other)
  Sender: FDA-Public Use
  Company Number: US-BAYER-201040724NA

PATIENT
  Age: 62 Year
  Sex: Male
  Weight: 73 kg

DRUGS (46)
  1. TRASYLOL [Suspect]
     Indication: CORONARY ARTERY BYPASS
     Dosage: 1 ML, UNK
     Route: 042
     Dates: start: 19970911, end: 19970911
  2. COREG [Concomitant]
     Dosage: UNK
     Route: 048
     Dates: start: 19970301
  3. NITROGLYCERIN [Concomitant]
     Dosage: 0.4 MG, PRN
     Route: 060
  4. MONOPRIL [Concomitant]
     Dosage: 10 MG, QD
     Route: 048
     Dates: start: 19970911
  5. SURFAK [Concomitant]
     Dosage: 240 MG, QD
     Route: 048
     Dates: start: 19970911
  6. TORSEMIDE [Concomitant]
     Dosage: 20 MG, UNK
     Route: 042
     Dates: start: 19970911, end: 19970911
  7. NORVASC [Concomitant]
     Dosage: 5 MG, QD
     Route: 048
  8. VENTOLIN DS [Concomitant]
     Dosage: 3 PUFFS FOUR TIMES DAILY
     Dates: start: 19970917
  9. MORPHINE [Concomitant]
     Dosage: 2 MG, PRN
     Route: 042
     Dates: start: 19970917
  10. ATIVAN [Concomitant]
     Dosage: 2.5 MG, Q4HR
     Route: 048
     Dates: start: 19970916
  11. PROTAMINE SULFATE [Concomitant]
     Dosage: 210 MG, UNK
     Route: 042
  12. ASPIRIN [Concomitant]
     Dosage: 325 MG, QD
     Route: 048
  13. LASIX [Concomitant]
     Dosage: 40 MG, UNK
     Route: 042
     Dates: start: 19970911
  14. POTASSIUM CHLORIDE [Concomitant]
     Dosage: 20 MEQ, UNK
     Route: 048
     Dates: start: 19970916
  15. VERSED [Concomitant]
     Dosage: 2MG/2ML, UNK
     Route: 042
     Dates: start: 19970911, end: 19970911
  16. PEPCID [Concomitant]
     Dosage: 20 MG, BID
     Route: 048
     Dates: start: 19970901
  17. RESTORIL [Concomitant]
     Dosage: 15 MG, HS AS NEEDED
     Route: 048
     Dates: start: 19970911, end: 19970918
  18. HALCION [Concomitant]
     Dosage: 0.125 MG, HS AS NEEDE
     Route: 048
  19. LIDOCAINE [Concomitant]
     Dosage: 100MG/5ML/BOLUS NOW/THEN 2MG/MIN
     Route: 042
     Dates: start: 19970912
  20. MAGNESIUM SULFATE [Concomitant]
     Dosage: 40 MEQ, UNK
     Route: 042
     Dates: start: 19970911, end: 19970911
  21. NIFEREX [Concomitant]
     Dosage: 150 MG, QD
     Route: 048
     Dates: start: 19970901
  22. VITAMIN E [Concomitant]
     Dosage: 400 IU, QD
     Route: 048
     Dates: start: 19970911
  23. ZEBETA [Concomitant]
     Dosage: 2.5 MG, QD
     Route: 048
     Dates: end: 19970911
  24. ALBUMIN (HUMAN) [Concomitant]
     Dosage: 5 % NOW, UNK
     Route: 042
     Dates: start: 19970912, end: 19970912
  25. TORADOL [Concomitant]
     Dosage: 30 MG/NOW AND 15MG Q6HR AS NEEDED
     Route: 042
     Dates: start: 19970911
  26. PHENERGAN HCL [Concomitant]
     Dosage: 25 MG, UNK
     Route: 042
     Dates: start: 19970911
  27. TRASYLOL [Suspect]
     Dosage: 100CC PUMP PRIME, UNK
     Route: 042
     Dates: start: 19970911, end: 19970911
  28. TRASYLOL [Suspect]
     Dosage: 200 ML, UNK
     Route: 042
     Dates: start: 19970911, end: 19970911
  29. TRASYLOL [Suspect]
     Dosage: 25 CC/HR, UNK
     Route: 042
     Dates: start: 19970911, end: 19970911
  30. PREDNISONE [Concomitant]
     Dosage: WEANING DOSE, UNK
     Route: 048
     Dates: start: 19970917
  31. TORADOL [Concomitant]
     Dosage: 15 MG Q6HR AS NEEDED
     Route: 042
     Dates: start: 19970911
  32. HEPARIN [Concomitant]
     Dosage: 500 UNITS/NOW
     Route: 042
     Dates: start: 19970911
  33. COMPAZINE [Concomitant]
     Dosage: 5 MG/NOW
     Route: 042
     Dates: start: 19970911
  34. ANCEF [Concomitant]
     Dosage: ONE GRAM/NOW AND Q8HR FOR 6 DOSES
     Route: 042
     Dates: start: 19970911, end: 19970913
  35. HESPAN IN EXCEL PLASTIC CONTAINER [Concomitant]
     Dosage: 6%/500ML/NOW
     Route: 042
     Dates: start: 19970911, end: 19970911
  36. PRAVACHOL [Concomitant]
     Dosage: 40 MG, QD
     Route: 048
     Dates: start: 19970911
  37. ZESTRIL [Concomitant]
     Dosage: 2.5 MG, QD
     Route: 048
     Dates: start: 19970913
  38. DOPAMINE HCL [Concomitant]
     Dosage: 400MG AT 3MCG/KG/MIN
     Route: 042
     Dates: start: 19970911, end: 19970911
  39. PREVACID [Concomitant]
     Dosage: 30 MG, QD
     Route: 048
  40. PEPCID [Concomitant]
     Dosage: 20 MG, BID
     Route: 042
     Dates: start: 19970911
  41. ASCORBIC ACID [Concomitant]
     Dosage: 1000 MG, QD
     Route: 048
     Dates: start: 19970901
  42. DARVOCET [Concomitant]
     Dosage: N-100 EVERY 4 HOURS AS NEEDED
     Route: 048
     Dates: start: 19970901
  43. LASIX [Concomitant]
     Indication: UNEVALUABLE EVENT
     Dosage: 20 MG, UNK
     Route: 042
     Dates: start: 19970916
  44. CALCIUM CHLORIDE [Concomitant]
     Dosage: 500 MG, UNK
     Route: 042
  45. DEMEROL [Concomitant]
     Dosage: 50-75MG/EVERY 3 HOURS AS NEEDED
     Route: 042
     Dates: start: 19970911
  46. NIPRIDE [Concomitant]
     Dosage: UNK
     Route: 042
     Dates: start: 19970911, end: 19970911

REACTIONS (13)
  - STRESS [None]
  - PAIN [None]
  - MULTI-ORGAN FAILURE [None]
  - ANXIETY [None]
  - FEAR [None]
  - RENAL IMPAIRMENT [None]
  - EMOTIONAL DISTRESS [None]
  - UNEVALUABLE EVENT [None]
  - RENAL FAILURE [None]
  - CEREBROVASCULAR ACCIDENT [None]
  - RENAL INJURY [None]
  - INJURY [None]
  - CEREBRAL HAEMORRHAGE [None]
